FAERS Safety Report 18800895 (Version 2)
Quarter: 2021Q2

REPORT INFORMATION
  Report Type: Spontaneous
  Country: FR (occurrence: FR)
  Receive Date: 20210128
  Receipt Date: 20210412
  Transmission Date: 20210717
  Serious: Yes (Hospitalization, Other)
  Sender: FDA-Public Use
  Company Number: FR-ALXN-A202101047

PATIENT
  Age: 28 Year
  Sex: Female

DRUGS (4)
  1. SOLIRIS [Suspect]
     Active Substance: ECULIZUMAB
     Dosage: UNK, UNK (RELAPSE DUE TO COVID?19)
     Route: 065
     Dates: start: 202009
  2. SOLIRIS [Suspect]
     Active Substance: ECULIZUMAB
     Indication: ATYPICAL HAEMOLYTIC URAEMIC SYNDROME
     Dosage: UNK, UNK (2ND RELAPSE, THERAPY FOR 12 MONTHS
     Route: 065
  3. SOLIRIS [Suspect]
     Active Substance: ECULIZUMAB
     Indication: DISEASE RECURRENCE
     Dosage: UNK, UNK (3RD RELAPSE, THERAPY FOR 3 MONTHS)
     Route: 065
  4. PENICILLIN                         /00000901/ [Concomitant]
     Active Substance: PENICILLIN G
     Indication: PROPHYLAXIS
     Dosage: UNK, UNK
     Route: 065

REACTIONS (3)
  - SARS-CoV-2 test positive [Unknown]
  - Disease recurrence [Recovering/Resolving]
  - COVID-19 [Unknown]

NARRATIVE: CASE EVENT DATE: 202009
